FAERS Safety Report 4517210-5 (Version None)
Quarter: 2004Q4

REPORT INFORMATION
  Report Type: 
  Country: None (occurrence: None)
  Receive Date: 20041202
  Receipt Date: 20041014
  Transmission Date: 20050328
  Serious: Yes (Life-Threatening, Disabling)
  Sender: FDA-Public Use
  Company Number: US-MERCK-0410USA02285

PATIENT
  Age: 61 Year
  Sex: Female

DRUGS (8)
  1. VIOXX [Suspect]
     Indication: ARTHRITIS
     Route: 048
     Dates: end: 20020201
  2. VIOXX [Suspect]
     Route: 048
     Dates: start: 20020101, end: 20030101
  3. LOTREL [Concomitant]
     Route: 065
     Dates: start: 20020219
  4. PAXIL [Concomitant]
     Route: 065
     Dates: start: 20030201
  5. DETROL [Concomitant]
     Route: 065
     Dates: start: 20030207
  6. ALBUTEROL [Concomitant]
     Route: 065
     Dates: start: 20020219
  7. DEMADEX [Concomitant]
     Route: 065
     Dates: start: 20021001
  8. MOBIC [Concomitant]
     Route: 065
     Dates: start: 20020101, end: 20020101

REACTIONS (4)
  - CARDIAC DISORDER [None]
  - CHEST PAIN [None]
  - DYSPNOEA [None]
  - VASOCONSTRICTION [None]
